FAERS Safety Report 13928261 (Version 2)
Quarter: 2017Q3

REPORT INFORMATION
  Report Type: Spontaneous
  Country: GB (occurrence: GB)
  Receive Date: 20170901
  Receipt Date: 20170905
  Transmission Date: 20171127
  Serious: Yes (Other)
  Sender: FDA-Public Use
  Company Number: GB-PFIZER INC-2017374740

PATIENT
  Sex: Male

DRUGS (10)
  1. GEMCITABINE HYDROCHLORIDE. [Suspect]
     Active Substance: GEMCITABINE HYDROCHLORIDE
     Dosage: 800 MG/M2, UNK (800 MG/M2, CYCLIC)
     Route: 065
     Dates: start: 20161207
  2. OXALIPLATIN SANDOZ [Suspect]
     Active Substance: OXALIPLATIN
     Dosage: 100 MG/M2, UNK (100 MG/M2, CYCLIC)
     Route: 065
     Dates: start: 20170105
  3. PLERIXAFOR [Concomitant]
     Active Substance: PLERIXAFOR
     Indication: HAEMATOPOIETIC STEM CELL MOBILISATION
     Dosage: UNK
     Route: 065
  4. GEMCITABINE HYDROCHLORIDE. [Suspect]
     Active Substance: GEMCITABINE HYDROCHLORIDE
     Indication: NONGERMINOMATOUS GERM CELL TUMOUR OF THE CNS
     Dosage: 800 MG/M2, UNK (800 MG/M2, CYCLIC)
     Route: 065
     Dates: start: 20161122
  5. OXALIPLATIN SANDOZ [Suspect]
     Active Substance: OXALIPLATIN
     Indication: NONGERMINOMATOUS GERM CELL TUMOUR OF THE CNS
     Dosage: 100 MG/M2, UNK (100 MG/M2, CYCLIC)
     Route: 065
     Dates: start: 20161122
  6. PACLITAXEL. [Suspect]
     Active Substance: PACLITAXEL
     Dosage: 170 MG/M2, UNK (170 MG/M2, CYCLIC)
     Route: 065
     Dates: start: 20161207
  7. PACLITAXEL. [Suspect]
     Active Substance: PACLITAXEL
     Indication: NONGERMINOMATOUS GERM CELL TUMOUR OF THE CNS
     Dosage: 170 MG/M2, UNK (170 MG/M2, CYCLIC )
     Route: 065
     Dates: start: 20161122
  8. GEMCITABINE HYDROCHLORIDE. [Suspect]
     Active Substance: GEMCITABINE HYDROCHLORIDE
     Dosage: 800 MG/M2, UNK (800 MG/M2, CYCLIC)
     Route: 065
     Dates: start: 20170105
  9. PACLITAXEL. [Suspect]
     Active Substance: PACLITAXEL
     Dosage: 170 MG/M2, UNK (170 MG/M2, CYCLIC )
     Route: 065
     Dates: start: 20170105
  10. OXALIPLATIN SANDOZ [Suspect]
     Active Substance: OXALIPLATIN
     Dosage: 100 MG/M2, UNK (100 MG/M2, CYCLIC)
     Route: 065
     Dates: start: 20161207

REACTIONS (2)
  - Brain teratoma [Unknown]
  - Pancytopenia [Unknown]
